FAERS Safety Report 16814993 (Version 1)
Quarter: 2019Q3

REPORT INFORMATION
  Report Type: Spontaneous
  Country: US (occurrence: US)
  Receive Date: 20190917
  Receipt Date: 20190917
  Transmission Date: 20191005
  Serious: No
  Sender: FDA-Public Use
  Company Number: US-ALLERGAN-1925192US

PATIENT
  Age: 40 Year
  Sex: Female
  Weight: 72.56 kg

DRUGS (4)
  1. A LOT OF UNSPECIFIED MEDICATIONS [Concomitant]
     Dosage: UNK
  2. UNSPECIFIED ANTIBIOTIC [Concomitant]
     Active Substance: UNSPECIFIED INGREDIENT
     Dosage: UNK
  3. LINZESS [Suspect]
     Active Substance: LINACLOTIDE
     Indication: CONSTIPATION
     Dosage: 290 ?G
     Route: 048
     Dates: start: 201905
  4. LINZESS [Suspect]
     Active Substance: LINACLOTIDE
     Dosage: 145 ?G, QD
     Route: 048
     Dates: start: 2018, end: 201905

REACTIONS (5)
  - Wrong dose [Unknown]
  - Infrequent bowel movements [Recovered/Resolved]
  - Nausea [Recovering/Resolving]
  - Therapeutic response decreased [Unknown]
  - Extra dose administered [Unknown]

NARRATIVE: CASE EVENT DATE: 2018
